FAERS Safety Report 5220819-7 (Version None)
Quarter: 2007Q1

REPORT INFORMATION
  Report Type: 
  Country: None (occurrence: None)
  Receive Date: 20070123
  Receipt Date: 20070109
  Transmission Date: 20070707
  Serious: Yes (Death)
  Sender: FDA-Public Use
  Company Number: WAES 0612USA00151

PATIENT
  Age: 92 Year
  Sex: Male

DRUGS (4)
  1. STROMECTOL [Suspect]
     Indication: ACARODERMATITIS
     Dosage: 6 MG/DAILY
     Route: 048
     Dates: start: 20061005, end: 20061005
  2. TAB EPINASTINE HYDROCHLORIDE [Suspect]
     Indication: PRURITUS
     Dosage: 20 MG/DAILY
     Route: 048
     Dates: start: 20061005, end: 20061007
  3. EURAX [Concomitant]
  4. LASIX [Suspect]
     Dosage: 1 TABLET/DAILY
     Route: 048
     Dates: start: 20061002, end: 20061017

REACTIONS (5)
  - BRONCHOPNEUMONIA [None]
  - CONDITION AGGRAVATED [None]
  - OEDEMA PERIPHERAL [None]
  - RESPIRATORY ARREST [None]
  - RESPIRATORY DISTRESS [None]
